FAERS Safety Report 8460632-0 (Version None)
Quarter: 2012Q2

REPORT INFORMATION
  Report Type: 
  Country: None (occurrence: None)
  Receive Date: 20120622
  Receipt Date: 20120612
  Transmission Date: 20120825
  Serious: Yes (Hospitalization)
  Sender: FDA-Public Use
  Company Number: US-ROCHE-1047083

PATIENT
  Sex: Male
  Weight: 4.4 kg

DRUGS (5)
  1. OMALIZUMAB [Suspect]
     Dosage: 375 MG, Q3W
     Route: 058
     Dates: start: 20110915
  2. FER IN SOL [Concomitant]
     Indication: ANAEMIA
  3. OMALIZUMAB [Suspect]
     Dosage: 375 MG, Q3W
     Route: 058
     Dates: start: 20110713
  4. OMALIZUMAB [Suspect]
     Dosage: 375 MG, Q3W
     Route: 058
     Dates: start: 20110818
  5. OMALIZUMAB [Suspect]
     Indication: ASTHMA
     Dosage: 375 MG, Q3W
     Route: 058
     Dates: start: 20080306, end: 20110511

REACTIONS (5)
  - ECZEMA [None]
  - DYSPHONIA [None]
  - MATERNAL EXPOSURE TIMING UNSPECIFIED [None]
  - POST PROCEDURAL HAEMORRHAGE [None]
  - UMBILICAL GRANULOMA [None]
